FAERS Safety Report 6275800-6 (Version None)
Quarter: 2009Q3

REPORT INFORMATION
  Report Type: 
  Country: None (occurrence: None)
  Receive Date: 20090721
  Receipt Date: 20081211
  Transmission Date: 20100115
  Serious: Yes (Hospitalization)
  Sender: FDA-Public Use
  Company Number: CH-SANOFI-SYNTHELABO-A01200816087

PATIENT
  Age: 65 Year
  Sex: Male

DRUGS (4)
  1. IMUREK [Concomitant]
     Indication: CROHN'S DISEASE
     Route: 048
  2. ASPIRIN [Interacting]
     Indication: PERIPHERAL VASCULAR DISORDER
     Route: 048
  3. CALCORT [Interacting]
     Indication: CROHN'S DISEASE
     Route: 048
  4. PLAVIX [Suspect]
     Indication: PERIPHERAL VASCULAR DISORDER
     Route: 048

REACTIONS (2)
  - DRUG INTERACTION [None]
  - GASTROINTESTINAL HAEMORRHAGE [None]
